FAERS Safety Report 5616072-2 (Version None)
Quarter: 2008Q1

REPORT INFORMATION
  Report Type: 
  Country: None (occurrence: None)
  Receive Date: 20080206
  Receipt Date: 20080125
  Transmission Date: 20080703
  Serious: Yes (Death)
  Sender: FDA-Public Use
  Company Number: US-PFIZER INC-2008007788

PATIENT

DRUGS (3)
  1. NORVASC [Suspect]
  2. ASPIRIN [Concomitant]
  3. DRUG, UNSPECIFIED [Concomitant]
     Indication: BLOOD CHOLESTEROL ABNORMAL

REACTIONS (2)
  - DEATH [None]
  - OEDEMA [None]
